FAERS Safety Report 7670353-X (Version None)
Quarter: 2011Q3

REPORT INFORMATION
  Report Type: 
  Country: None (occurrence: None)
  Receive Date: 20110809
  Receipt Date: 20110802
  Transmission Date: 20111222
  Serious: No
  Sender: FDA-Public Use
  Company Number: US-BIOGENIDEC-2011BI025316

PATIENT
  Age: 43 Year
  Sex: Female

DRUGS (2)
  1. AVONEX [Concomitant]
     Indication: MULTIPLE SCLEROSIS
     Route: 030
     Dates: start: 20080101
  2. TYSABRI [Suspect]
     Indication: MULTIPLE SCLEROSIS
     Route: 042
     Dates: start: 20080326

REACTIONS (8)
  - DEAFNESS UNILATERAL [None]
  - HEAD INJURY [None]
  - MICTURITION URGENCY [None]
  - HEADACHE [None]
  - FALL [None]
  - URINARY INCONTINENCE [None]
  - ALTERED VISUAL DEPTH PERCEPTION [None]
  - FATIGUE [None]
